FAERS Safety Report 9125731 (Version 4)
Quarter: 2013Q2

REPORT INFORMATION
  Report Type: Spontaneous
  Country: US (occurrence: US)
  Receive Date: 20130227
  Receipt Date: 20130619
  Transmission Date: 20140414
  Serious: Yes (Other)
  Sender: FDA-Public Use
  Company Number: US-ABBOTT-13P-163-1053339-00

PATIENT
  Sex: Male
  Weight: 74.91 kg

DRUGS (3)
  1. HUMIRA [Suspect]
     Indication: CHORIORETINOPATHY
     Dates: start: 201301
  2. HUMIRA [Suspect]
     Dates: end: 201209
  3. PREDNISONE [Concomitant]
     Indication: CHORIORETINOPATHY

REACTIONS (3)
  - Visual acuity reduced [Recovered/Resolved]
  - Off label use [Not Recovered/Not Resolved]
  - Retinopathy [Not Recovered/Not Resolved]
